FAERS Safety Report 4695808-1 (Version None)
Quarter: 2005Q2

REPORT INFORMATION
  Report Type: 
  Country: None (occurrence: None)
  Receive Date: 20050620
  Receipt Date: 20050620
  Transmission Date: 20051028
  Serious: Yes (Other)
  Sender: FDA-Public Use
  Company Number: None

PATIENT
  Sex: Female
  Weight: 137.8935 kg

DRUGS (1)
  1. DURAGESIC-50 [Suspect]
     Indication: BACK PAIN

REACTIONS (1)
  - DRUG INEFFECTIVE [None]
